FAERS Safety Report 20230802 (Version 1)
Quarter: 2021Q4

REPORT INFORMATION
  Report Type: Other
  Country: FR (occurrence: FR)
  Receive Date: 20211227
  Receipt Date: 20211227
  Transmission Date: 20220303
  Serious: Yes (Life-Threatening)
  Sender: FDA-Public Use
  Company Number: None

PATIENT

DRUGS (5)
  1. PRAVASTATIN [Suspect]
     Active Substance: PRAVASTATIN
     Indication: Dyslipidaemia
     Dosage: 20 MILLIGRAM, QD
     Route: 048
  2. AMISULPRIDE [Suspect]
     Active Substance: AMISULPRIDE
     Indication: Schizophrenia
     Dosage: 250 MILLIGRAM, QD
     Route: 048
  3. PALIPERIDONE PALMITATE [Suspect]
     Active Substance: PALIPERIDONE PALMITATE
     Indication: Schizophrenia
     Dosage: 100 MILLIGRAM
     Route: 030
  4. LOPRAZOLAM [Concomitant]
     Active Substance: LOPRAZOLAM
     Indication: Product used for unknown indication
     Dosage: 1 MILLIGRAM, QD
     Route: 048
  5. OXAZEPAM [Concomitant]
     Active Substance: OXAZEPAM
     Indication: Product used for unknown indication
     Dosage: 125 MILLIGRAM, QD
     Route: 048

REACTIONS (1)
  - Status epilepticus [Recovered/Resolved]

NARRATIVE: CASE EVENT DATE: 20211123
